FAERS Safety Report 5248025-0 (Version None)
Quarter: 2007Q1

REPORT INFORMATION
  Report Type: 
  Country: None (occurrence: None)
  Receive Date: 20070222
  Receipt Date: 20070206
  Transmission Date: 20070707
  Serious: Yes (Other)
  Sender: FDA-Public Use
  Company Number: B0455575A

PATIENT
  Age: 42 Year
  Sex: Male

DRUGS (3)
  1. EPIVIR-HBV [Suspect]
     Indication: HEPATITIS B VIRUS
     Dates: start: 20010901
  2. ADEFOVIR DIPIVOXIL KIT [Suspect]
     Indication: HEPATITIS B
     Dates: start: 20030701
  3. INTERFERON ALFA-2A [Concomitant]

REACTIONS (2)
  - ALANINE AMINOTRANSFERASE INCREASED [None]
  - TRANSAMINASES INCREASED [None]
